FAERS Safety Report 4742653-4 (Version None)
Quarter: 2005Q3

REPORT INFORMATION
  Report Type: 
  Country: None (occurrence: None)
  Receive Date: 20050811
  Receipt Date: 20050729
  Transmission Date: 20060218
  Serious: Yes (Other)
  Sender: FDA-Public Use
  Company Number: US-GLAXOSMITHKLINE-A0568213A

PATIENT
  Age: 42 Year
  Sex: Female
  Weight: 102 kg

DRUGS (2)
  1. EQUATE NTS 21MG [Suspect]
     Route: 062
     Dates: start: 20050723, end: 20050729
  2. HYDROCODONE [Concomitant]
     Route: 048

REACTIONS (6)
  - INTENTIONAL MISUSE [None]
  - NAUSEA [None]
  - NICOTINE DEPENDENCE [None]
  - PALPITATIONS [None]
  - PSYCHOTIC DISORDER [None]
  - SUICIDAL IDEATION [None]
